FAERS Safety Report 23697535 (Version 2)
Quarter: 2024Q2

REPORT INFORMATION
  Report Type: Spontaneous
  Country: CH (occurrence: CH)
  Receive Date: 20240402
  Receipt Date: 20240413
  Transmission Date: 20240715
  Serious: Yes (Hospitalization)
  Sender: FDA-Public Use
  Company Number: CH-TEVA-VS-3176759

PATIENT
  Age: 77 Year
  Sex: Female

DRUGS (2)
  1. CIPROFLOXACIN [Suspect]
     Active Substance: CIPROFLOXACIN
     Indication: Campylobacter infection
     Route: 048
  2. PREDNISONE [Suspect]
     Active Substance: PREDNISONE
     Indication: Polymyalgia rheumatica
     Route: 065

REACTIONS (4)
  - Campylobacter infection [Recovered/Resolved]
  - Osteomyelitis [Unknown]
  - Hypertransaminasaemia [Recovered/Resolved]
  - Intervertebral discitis [Unknown]
